FAERS Safety Report 5896217-X (Version None)
Quarter: 2008Q3

REPORT INFORMATION
  Report Type: 
  Country: None (occurrence: None)
  Receive Date: 20080924
  Receipt Date: 20080912
  Transmission Date: 20090109
  Serious: Yes (Death, Life-Threatening, Hospitalization)
  Sender: FDA-Public Use
  Company Number: HK-PFIZER INC-2006105543

PATIENT
  Sex: Male
  Weight: 55.6 kg

DRUGS (4)
  1. SU-011,248 [Suspect]
     Indication: GASTROINTESTINAL STROMAL TUMOUR
     Route: 048
     Dates: start: 20060720, end: 20060816
  2. FAMOTIDINE [Concomitant]
     Route: 048
     Dates: start: 20060816
  3. DICLOFENAC SODIUM [Concomitant]
     Route: 048
     Dates: start: 20060816
  4. BLOOD, CALF, DEPROT., LMW PORTION [Concomitant]
     Route: 061
     Dates: start: 20060816

REACTIONS (6)
  - DISSEMINATED INTRAVASCULAR COAGULATION [None]
  - MUCOSAL ULCERATION [None]
  - PANCREATITIS ACUTE [None]
  - RENAL FAILURE ACUTE [None]
  - SEPSIS [None]
  - STEVENS-JOHNSON SYNDROME [None]
